FAERS Safety Report 7307219-0 (Version None)
Quarter: 2011Q1

REPORT INFORMATION
  Report Type: 
  Country: None (occurrence: None)
  Receive Date: 20110223
  Receipt Date: 20110218
  Transmission Date: 20110831
  Serious: No
  Sender: FDA-Public Use
  Company Number: US-PFIZER INC-2011036627

PATIENT
  Sex: Male

DRUGS (1)
  1. ADVIL [Suspect]
     Indication: NASOPHARYNGITIS
     Dosage: 200 MG, UNKNOWN FREQUENCY
     Route: 048
     Dates: start: 20110217

REACTIONS (1)
  - RASH GENERALISED [None]
